FAERS Safety Report 4341910-3 (Version None)
Quarter: 2004Q2

REPORT INFORMATION
  Report Type: 
  Country: None (occurrence: None)
  Receive Date: 20040415
  Receipt Date: 20040329
  Transmission Date: 20050107
  Serious: Yes (Other)
  Sender: FDA-Public Use
  Company Number: USA040363175

PATIENT
  Age: 17 Year
  Sex: Male

DRUGS (2)
  1. STRATTERA [Suspect]
     Indication: ATTENTION DEFICIT/HYPERACTIVITY DISORDER
     Dosage: 90 MG DAY
     Dates: start: 20030701, end: 20031001
  2. LEXAPRO [Concomitant]

REACTIONS (6)
  - BILE DUCT STENOSIS [None]
  - CHOLANGITIS SCLEROSING [None]
  - FEELING ABNORMAL [None]
  - HEPATIC CIRRHOSIS [None]
  - NIGHT SWEATS [None]
  - TREMOR [None]
